FAERS Safety Report 9288914 (Version 2)
Quarter: 2013Q2

REPORT INFORMATION
  Report Type: Spontaneous
  Country: CA (occurrence: CA)
  Receive Date: 20130514
  Receipt Date: 20130621
  Transmission Date: 20140414
  Serious: Yes (Life-Threatening, Hospitalization, Disabling)
  Sender: FDA-Public Use
  Company Number: CA-GLAXOSMITHKLINE-A1022716A

PATIENT
  Sex: Female
  Weight: 63.6 kg

DRUGS (1)
  1. MALARONE [Suspect]
     Indication: PROPHYLAXIS
     Dosage: 1TAB PER DAY
     Route: 048
     Dates: start: 20111124, end: 20120707

REACTIONS (4)
  - Malaria [Recovered/Resolved]
  - Malaise [Unknown]
  - Infection parasitic [Unknown]
  - Local swelling [Unknown]
